FAERS Safety Report 9101866 (Version 2)
Quarter: 2013Q1

REPORT INFORMATION
  Report Type: Spontaneous
  Country: JP (occurrence: JP)
  Receive Date: 20130218
  Receipt Date: 20130305
  Transmission Date: 20140127
  Serious: Yes (Hospitalization, Other)
  Sender: FDA-Public Use
  Company Number: JP-ASTRAZENECA-2013SE09165

PATIENT
  Age: 68 Year
  Sex: Female

DRUGS (3)
  1. TENORMIN [Suspect]
     Indication: HYPERTENSION
     Route: 048
  2. TENORMIN [Interacting]
     Indication: HYPERTENSION
     Route: 048
     Dates: start: 20130201, end: 20130203
  3. RYTHMODAN [Interacting]
     Route: 048
     Dates: start: 20130201, end: 20130203

REACTIONS (3)
  - Drug interaction [Unknown]
  - Electrolyte imbalance [Unknown]
  - Bradycardia [Recovering/Resolving]
